FAERS Safety Report 6313046-3 (Version None)
Quarter: 2009Q3

REPORT INFORMATION
  Report Type: 
  Country: None (occurrence: None)
  Receive Date: 20090818
  Receipt Date: 20090803
  Transmission Date: 20100115
  Serious: Yes (Other)
  Sender: FDA-Public Use
  Company Number: US-PFIZER INC-2008070572

PATIENT
  Sex: Female
  Weight: 74.8 kg

DRUGS (10)
  1. CHANTIX [Interacting]
     Indication: SMOKING CESSATION THERAPY
     Dates: start: 20080817, end: 20081015
  2. TYLENOL W/ CODEINE NO. 3 [Interacting]
     Indication: HEADACHE
     Dates: start: 20080828
  3. COFFEE [Suspect]
     Dates: start: 20080828
  4. ZOLOFT [Concomitant]
  5. PREVACID [Concomitant]
  6. ZANTAC [Concomitant]
  7. IBUPROFEN [Concomitant]
  8. TYLENOL (CAPLET) [Concomitant]
  9. TEGRETOL [Concomitant]
  10. MULTI-VITAMINS [Concomitant]

REACTIONS (22)
  - ANGER [None]
  - ANXIETY [None]
  - CONVULSION [None]
  - COUGH [None]
  - DECREASED APPETITE [None]
  - DIZZINESS [None]
  - DRUG DEPENDENCE [None]
  - FALL [None]
  - FEAR [None]
  - FEELING HOT [None]
  - HYPERHIDROSIS [None]
  - INCORRECT DOSE ADMINISTERED [None]
  - IRRITABILITY [None]
  - MALAISE [None]
  - MOOD ALTERED [None]
  - NASOPHARYNGITIS [None]
  - NAUSEA [None]
  - NIGHTMARE [None]
  - STRESS [None]
  - SUBDURAL HAEMATOMA [None]
  - TERMINAL INSOMNIA [None]
  - VOMITING [None]
